FAERS Safety Report 15869399 (Version 1)
Quarter: 2019Q1

REPORT INFORMATION
  Report Type: Spontaneous
  Country: US (occurrence: US)
  Receive Date: 20190125
  Receipt Date: 20190125
  Transmission Date: 20190417
  Serious: No
  Sender: FDA-Public Use
  Company Number: US-ACTELION-A-NJ2018-174829

PATIENT
  Age: 58 Year
  Sex: Female

DRUGS (1)
  1. OPSUMIT [Suspect]
     Active Substance: MACITENTAN
     Indication: PULMONARY ARTERIAL HYPERTENSION
     Dosage: 10 MG, QD
     Route: 048
     Dates: start: 20180628

REACTIONS (7)
  - Dyspnoea [Not Recovered/Not Resolved]
  - Wheezing [Unknown]
  - Fatigue [Unknown]
  - Product dose omission [Unknown]
  - Peripheral swelling [Not Recovered/Not Resolved]
  - Fluid retention [Unknown]
  - Blood potassium decreased [Unknown]
